FAERS Safety Report 23962651 (Version 1)
Quarter: 2024Q2

REPORT INFORMATION
  Report Type: Report from Study
  Country: PT (occurrence: PT)
  Receive Date: 20240611
  Receipt Date: 20240611
  Transmission Date: 20240716
  Serious: Yes (Death, Life-Threatening, Hospitalization, Other)
  Sender: FDA-Public Use
  Company Number: None

PATIENT
  Age: 64 Year
  Sex: Male

DRUGS (3)
  1. AZACITIDINE [Suspect]
     Active Substance: AZACITIDINE
     Indication: Acute myeloid leukaemia
  2. CYTARABINE [Suspect]
     Active Substance: CYTARABINE
     Indication: Acute myeloid leukaemia
     Dosage: 20 MG/M2, CYCLIC  (20 MG/M2/DAY; LOW-DOSE- 5 CYCLES) 10 DAYS PER CYCLE
     Route: 058
  3. GLASDEGIB [Suspect]
     Active Substance: GLASDEGIB
     Indication: Acute myeloid leukaemia
     Dosage: 100 MG, CYCLIC (C (28 DAYS DAILY, 5 CYCLES)
     Route: 048

REACTIONS (3)
  - Toxicity to various agents [Unknown]
  - Haemorrhagic stroke [Fatal]
  - Febrile neutropenia [Fatal]
